FAERS Safety Report 14554286 (Version 1)
Quarter: 2018Q1

REPORT INFORMATION
  Report Type: Spontaneous
  Country: US (occurrence: US)
  Receive Date: 20180218
  Receipt Date: 20180218
  Transmission Date: 20180509
  Serious: Yes (Other)
  Sender: FDA-Public Use
  Company Number: None

PATIENT
  Age: 31 Year
  Sex: Female
  Weight: 58.06 kg

DRUGS (1)
  1. MIRENA [Suspect]
     Active Substance: LEVONORGESTREL

REACTIONS (7)
  - Neuropathy peripheral [None]
  - Hyperhidrosis [None]
  - Insomnia [None]
  - Dizziness [None]
  - Mood swings [None]
  - Nausea [None]
  - Progesterone decreased [None]

NARRATIVE: CASE EVENT DATE: 20171219
